FAERS Safety Report 16642166 (Version 2)
Quarter: 2019Q3

REPORT INFORMATION
  Report Type: Spontaneous
  Country: BR (occurrence: BR)
  Receive Date: 20190729
  Receipt Date: 20190802
  Transmission Date: 20191004
  Serious: No
  Sender: FDA-Public Use
  Company Number: BR-PFIZER INC-2018330191

PATIENT
  Age: 81 Year
  Sex: Female
  Weight: 73 kg

DRUGS (2)
  1. ZOLTEC [Suspect]
     Active Substance: FLUCONAZOLE
     Dosage: 150 MG, ALTERNATE DAY (EVERY OTHER DAY)
     Dates: start: 20190723
  2. ZOLTEC [Suspect]
     Active Substance: FLUCONAZOLE
     Indication: URINARY TRACT INFECTION FUNGAL
     Dosage: 150 MG, ALTERNATE DAY (4 TABLETS (TOTAL) IN ALTERNATE DAY)
     Dates: start: 2018

REACTIONS (3)
  - Sinusitis [Recovered/Resolved]
  - Product use in unapproved indication [Unknown]
  - Off label use [Unknown]

NARRATIVE: CASE EVENT DATE: 2018
